FAERS Safety Report 18727951 (Version 1)
Quarter: 2021Q1

REPORT INFORMATION
  Report Type: Spontaneous
  Country: US (occurrence: US)
  Receive Date: 20210112
  Receipt Date: 20210112
  Transmission Date: 20210419
  Serious: Yes (Death)
  Sender: FDA-Public Use
  Company Number: US-ROCHE-2747072

PATIENT
  Age: 78 Year
  Sex: Male

DRUGS (13)
  1. ESBRIET [Suspect]
     Active Substance: PIRFENIDONE
     Indication: IDIOPATHIC PULMONARY FIBROSIS
     Dosage: TAKE 1 TABLET BY MOUTH 3 TIMES A DAY WITH FOOD AT THE SAME TIME EACH DAY
     Route: 048
     Dates: start: 20200818
  2. ASPIRIN. [Concomitant]
     Active Substance: ASPIRIN
  3. NOVOLOG [Concomitant]
     Active Substance: INSULIN ASPART
     Dosage: 100 UNIT/ML
  4. GLIPIZIDE. [Concomitant]
     Active Substance: GLIPIZIDE
  5. LOSARTAN POTASSIUM. [Concomitant]
     Active Substance: LOSARTAN POTASSIUM
  6. PIOGLITAZONE. [Concomitant]
     Active Substance: PIOGLITAZONE
  7. NAPROXEN. [Concomitant]
     Active Substance: NAPROXEN
  8. CELEBREX [Concomitant]
     Active Substance: CELECOXIB
  9. ATORVASTATIN [Concomitant]
     Active Substance: ATORVASTATIN
  10. LANTUS [Concomitant]
     Active Substance: INSULIN GLARGINE
     Dosage: 100 UNIT/ML
  11. FISH OIL [Concomitant]
     Active Substance: FISH OIL
  12. METFORMIN HYDROCHLORIDE. [Concomitant]
     Active Substance: METFORMIN HYDROCHLORIDE
  13. CHLORTHALIDONE. [Concomitant]
     Active Substance: CHLORTHALIDONE

REACTIONS (1)
  - Death [Fatal]

NARRATIVE: CASE EVENT DATE: 20201230
